FAERS Safety Report 8168692-1 (Version None)
Quarter: 2012Q1

REPORT INFORMATION
  Report Type: 
  Country: None (occurrence: None)
  Receive Date: 20120227
  Receipt Date: 20120220
  Transmission Date: 20120608
  Serious: Yes (Hospitalization)
  Sender: FDA-Public Use
  Company Number: PHHY2012ZA015744

PATIENT
  Sex: Female

DRUGS (2)
  1. ZOLEDRONOC ACID [Suspect]
     Dosage: 5 MG/10 ML
     Route: 042
     Dates: start: 20100101
  2. AROMASIN [Concomitant]
     Indication: NEOPLASM MALIGNANT

REACTIONS (1)
  - BREAST CANCER [None]
